FAERS Safety Report 5394562-8 (Version None)
Quarter: 2007Q3

REPORT INFORMATION
  Report Type: 
  Country: None (occurrence: None)
  Receive Date: 20070723
  Receipt Date: 20070709
  Transmission Date: 20080115
  Serious: Yes (Life-Threatening, Hospitalization)
  Sender: FDA-Public Use
  Company Number: DE-SHR-DE-2007-009874

PATIENT
  Age: 48 Year
  Sex: Male

DRUGS (3)
  1. BETASERON [Suspect]
     Indication: SECONDARY PROGRESSIVE MULTIPLE SCLEROSIS
     Route: 058
     Dates: start: 20020902, end: 20070104
  2. IBUPROFEN [Suspect]
     Indication: PREMEDICATION
     Dosage: 400 MG/D, UNK
     Dates: start: 20020826, end: 20070102
  3. SIRDALUD [Concomitant]
     Dosage: 2 MG, 2X/DAY

REACTIONS (11)
  - DIZZINESS [None]
  - GLOMERULAR VASCULAR DISORDER [None]
  - HAEMOLYSIS [None]
  - HAEMOLYTIC URAEMIC SYNDROME [None]
  - HYPERTENSION [None]
  - NIGHT SWEATS [None]
  - RENAL IMPAIRMENT [None]
  - RETINAL HAEMORRHAGE [None]
  - THROMBOCYTOPENIA [None]
  - THROMBOTIC MICROANGIOPATHY [None]
  - VISUAL DISTURBANCE [None]
